FAERS Safety Report 10010969 (Version 4)
Quarter: 2015Q1

REPORT INFORMATION
  Report Type: Report from Study
  Country: US (occurrence: US)
  Receive Date: 20140314
  Receipt Date: 20140407
  Transmission Date: 20150720
  Serious: Yes (Hospitalization)
  Sender: FDA-Public Use
  Company Number: US-SA-2014SA026372

PATIENT
  Age: 57 Year
  Sex: Female

DRUGS (11)
  1. AUBAGIO [Suspect]
     Active Substance: TERIFLUNOMIDE
     Indication: MULTIPLE SCLEROSIS
     Route: 048
     Dates: start: 20140127, end: 20140227
  2. AMPYRA [Concomitant]
     Active Substance: DALFAMPRIDINE
  3. GAMUNEX [Concomitant]
     Active Substance: HUMAN IMMUNOGLOBULIN G
     Dates: end: 20140228
  4. SYNTHROID [Concomitant]
     Active Substance: LEVOTHYROXINE SODIUM
  5. CYANOCOBALAMIN. [Concomitant]
     Active Substance: CYANOCOBALAMIN
     Indication: PERNICIOUS ANAEMIA
     Dosage: DOSE:1000 MICROGRAM(S)/MILLILITRE
  6. DITROPAN XL [Concomitant]
     Active Substance: OXYBUTYNIN CHLORIDE
  7. BACLOFEN. [Concomitant]
     Active Substance: BACLOFEN
  8. PAROXETINE [Concomitant]
     Active Substance: PAROXETINE\PAROXETINE HYDROCHLORIDE
  9. NASONEX [Concomitant]
     Active Substance: MOMETASONE FUROATE
     Dosage: 2 SPRAY IN EACH NOSTRIL DAILY BEFORE BED
  10. BENAZEPRIL/HYDROCHLOROTHIAZIDE [Concomitant]
     Route: 048
  11. GABAPENTIN. [Concomitant]
     Active Substance: GABAPENTIN
     Dosage: 3 TIMES A DAY AS NEEDED TEMPORARILY OFF

REACTIONS (6)
  - Hypertension [Recovering/Resolving]
  - Weight increased [Not Recovered/Not Resolved]
  - Skin burning sensation [Unknown]
  - Paraesthesia [Unknown]
  - Peripheral swelling [Recovering/Resolving]
  - Joint swelling [Recovering/Resolving]

NARRATIVE: CASE EVENT DATE: 20140227
